FAERS Safety Report 8450075-8 (Version None)
Quarter: 2012Q2

REPORT INFORMATION
  Report Type: 
  Country: None (occurrence: None)
  Receive Date: 20120620
  Receipt Date: 20120611
  Transmission Date: 20120825
  Serious: Yes (Other)
  Sender: FDA-Public Use
  Company Number: US-JNJFOC-20120607616

PATIENT
  Age: 77 Year
  Sex: Male
  Weight: 97.98 kg

DRUGS (4)
  1. MOTRIN [Suspect]
     Indication: ARTHRITIS
     Dosage: TAKEN FOR 25 YEARS
     Route: 048
  2. EXTRA STRENGTH TYLENOL [Concomitant]
     Indication: ARTHRITIS
     Dosage: OCCASIONAL USE
     Route: 048
  3. NASAL SPRAY (NOS) [Concomitant]
     Indication: MULTIPLE ALLERGIES
     Route: 065
  4. UNKNOWN MEDICATION [Concomitant]
     Indication: CARDIAC FAILURE CONGESTIVE
     Route: 065

REACTIONS (1)
  - RENAL INJURY [None]
